FAERS Safety Report 18574841 (Version 1)
Quarter: 2020Q4

REPORT INFORMATION
  Report Type: Spontaneous
  Country: US (occurrence: US)
  Receive Date: 20201202
  Receipt Date: 20201202
  Transmission Date: 20210114
  Serious: Yes (Hospitalization)
  Sender: FDA-Public Use
  Company Number: None

PATIENT
  Age: 69 Year
  Sex: Male
  Weight: 72 kg

DRUGS (1)
  1. PIPERACILLIN/TAZOBACTAM (PIPERACILLIN NA 3GM/TAZOBACTAM NA 0.37GM/50ML [Suspect]
     Active Substance: PIPERACILLIN SODIUM\TAZOBACTAM SODIUM
     Indication: OSTEOMYELITIS
     Dosage: ?          OTHER STRENGTH:3GM/0.375GM/VIL;?
     Route: 042
     Dates: start: 20201006, end: 20201013

REACTIONS (6)
  - Blood creatinine increased [None]
  - Hypophagia [None]
  - Polyuria [None]
  - Hypotension [None]
  - Tubulointerstitial nephritis [None]
  - Acute kidney injury [None]

NARRATIVE: CASE EVENT DATE: 20201013
